FAERS Safety Report 14161561 (Version 2)
Quarter: 2018Q1

REPORT INFORMATION
  Report Type: Report from Study
  Country: FR (occurrence: FR)
  Receive Date: 20171106
  Receipt Date: 20180312
  Transmission Date: 20180508
  Serious: Yes (Life-Threatening, Other)
  Sender: FDA-Public Use
  Company Number: FR-ROCHE-2020729

PATIENT
  Age: 44 Year
  Sex: Male

DRUGS (5)
  1. RITUXIMAB. [Suspect]
     Active Substance: RITUXIMAB
     Indication: RETINAL VASCULITIS
     Dosage: AT WEEKS 0, 1, 2 AND 3
     Route: 042
  2. RITUXIMAB. [Suspect]
     Active Substance: RITUXIMAB
     Dosage: AT MONTH 5?MAINTAINANCE DOSE
     Route: 042
  3. RITUXIMAB. [Suspect]
     Active Substance: RITUXIMAB
     Dosage: AT WEEK 0, 1, 2 AND 3?INDUCTION
     Route: 042
  4. RITUXIMAB. [Suspect]
     Active Substance: RITUXIMAB
     Dosage: AT MONTH 10?MAINTAINANCE DOSE
     Route: 042
  5. RITUXIMAB. [Suspect]
     Active Substance: RITUXIMAB
     Dosage: AT MONTH 5?MAINTAINANCE DOSE
     Route: 042

REACTIONS (5)
  - Epstein-Barr virus infection [Unknown]
  - Primary effusion lymphoma [Recovered/Resolved]
  - Human herpesvirus 8 infection [Unknown]
  - Intentional product use issue [Unknown]
  - Off label use [Unknown]
